FAERS Safety Report 4911688-0 (Version None)
Quarter: 2006Q1

REPORT INFORMATION
  Report Type: 
  Country: None (occurrence: None)
  Receive Date: 20060213
  Receipt Date: 20060130
  Transmission Date: 20060701
  Serious: Yes (Hospitalization, Other)
  Sender: FDA-Public Use
  Company Number: 2006016922

PATIENT
  Sex: Male

DRUGS (2)
  1. CELEBREX [Suspect]
     Indication: INFLAMMATION
     Dates: start: 19990101, end: 20010701
  2. CELEBREX [Suspect]
     Indication: PAIN
     Dates: start: 19990101, end: 20010701

REACTIONS (1)
  - MYOCARDIAL INFARCTION [None]
